FAERS Safety Report 8738155 (Version 3)
Quarter: 2013Q2

REPORT INFORMATION
  Report Type: Spontaneous
  Country: US (occurrence: GB)
  Receive Date: 20120823
  Receipt Date: 20130520
  Transmission Date: 20140414
  Serious: Yes (Other)
  Sender: FDA-Public Use
  Company Number: GB-009507513-1208GBR006401

PATIENT
  Sex: Female
  Weight: 50 kg

DRUGS (3)
  1. SINGULAIR [Suspect]
     Indication: ASTHMA
     Dosage: 5 MG, QD
     Route: 048
     Dates: start: 20111216, end: 20120809
  2. PROMETHAZINE HYDROCHLORIDE [Concomitant]
     Indication: PRURITUS
     Dosage: 5 MG, UNK
     Dates: start: 20010319
  3. SERETIDE [Concomitant]
     Dosage: 2 DF, BID
     Dates: start: 20111116

REACTIONS (4)
  - Allergic granulomatous angiitis [Unknown]
  - Vasculitis [Unknown]
  - Rash [Unknown]
  - Asthma [Unknown]
